FAERS Safety Report 22331977 (Version 1)
Quarter: 2023Q2

REPORT INFORMATION
  Report Type: Spontaneous
  Country: GB (occurrence: GB)
  Receive Date: 20230517
  Receipt Date: 20230517
  Transmission Date: 20230722
  Serious: Yes (Other)
  Sender: FDA-Public Use
  Company Number: GB-MHRA-MED-202305121711327850-TJBDR

PATIENT
  Age: 40 Year
  Sex: Female
  Weight: 71 kg

DRUGS (1)
  1. DOXYCYCLINE [Suspect]
     Active Substance: DOXYCYCLINE
     Indication: Lower respiratory tract infection
     Dosage: UNK, DAILY (200MG FIRST DOSE, THEN 100MG DAILY)
     Dates: start: 20221208, end: 20221211

REACTIONS (2)
  - Depression suicidal [Recovered/Resolved]
  - Anxiety [Recovered/Resolved]

NARRATIVE: CASE EVENT DATE: 20221208
